FAERS Safety Report 4461142-8 (Version None)
Quarter: 2004Q3

REPORT INFORMATION
  Report Type: 
  Country: None (occurrence: None)
  Receive Date: 20040923
  Receipt Date: 20040909
  Transmission Date: 20050211
  Serious: Yes (Disabling)
  Sender: FDA-Public Use
  Company Number: FABR-10735

PATIENT
  Age: 38 Year
  Sex: Male
  Weight: 68.0396 kg

DRUGS (14)
  1. FABRAZYME [Suspect]
     Indication: FABRY'S DISEASE
     Dosage: 1 MG/KG Q2WKS IV
     Route: 042
     Dates: start: 20030901
  2. METHADONE HCL [Concomitant]
  3. NEURONTIN [Concomitant]
  4. LEXAPRO [Concomitant]
  5. MIACALCIN [Concomitant]
  6. AMBIEN [Concomitant]
  7. MULTI-VITAMIN [Concomitant]
  8. RENAGEL [Concomitant]
  9. NAHCO3 [Concomitant]
  10. ZEMPLAR [Concomitant]
  11. FOSAMAX [Concomitant]
  12. VENOFER [Concomitant]
  13. SENNA [Concomitant]
  14. NORCO [Concomitant]

REACTIONS (5)
  - DEAFNESS UNILATERAL [None]
  - DIZZINESS [None]
  - HAEMODIALYSIS-INDUCED SYMPTOM [None]
  - VERTIGO [None]
  - WEIGHT DECREASED [None]
